FAERS Safety Report 16720092 (Version 2)
Quarter: 2019Q3

REPORT INFORMATION
  Report Type: Spontaneous
  Country: US (occurrence: US)
  Receive Date: 20190820
  Receipt Date: 20190927
  Transmission Date: 20191005
  Serious: No
  Sender: FDA-Public Use
  Company Number: US-PFIZER INC-2019354772

PATIENT
  Age: 72 Year
  Sex: Female
  Weight: 85 kg

DRUGS (1)
  1. IBRANCE [Suspect]
     Active Substance: PALBOCICLIB
     Indication: NEOPLASM MALIGNANT
     Dosage: 75 MG, CYCLIC (FOR 14 DAYS AND THEN OFF OF IT FOR 14 DAYS)
     Dates: end: 2019

REACTIONS (2)
  - Disturbance in attention [Recovered/Resolved]
  - Cystitis [Recovered/Resolved]

NARRATIVE: CASE EVENT DATE: 201904
